FAERS Safety Report 7046829-5 (Version None)
Quarter: 2010Q4

REPORT INFORMATION
  Report Type: 
  Country: None (occurrence: None)
  Receive Date: 20101015
  Receipt Date: 20101008
  Transmission Date: 20110411
  Serious: Yes (Other)
  Sender: FDA-Public Use
  Company Number: FI-JNJFOC-20100908453

PATIENT
  Sex: Male

DRUGS (8)
  1. CONCERTA [Suspect]
     Indication: ATTENTION DEFICIT/HYPERACTIVITY DISORDER
     Route: 048
  2. CONCERTA [Suspect]
     Route: 048
  3. CONCERTA [Suspect]
     Route: 048
  4. CONCERTA [Suspect]
     Route: 048
  5. PARACETAMOL [Concomitant]
     Indication: NASOPHARYNGITIS
     Dosage: DURING 3 DAYS
     Route: 065
  6. PARACETAMOL [Concomitant]
     Indication: PYREXIA
     Dosage: DURING 3 DAYS
     Route: 065
  7. PANADOL [Concomitant]
     Indication: NASOPHARYNGITIS
     Route: 065
  8. PANADOL [Concomitant]
     Indication: PYREXIA
     Route: 065

REACTIONS (5)
  - ALANINE AMINOTRANSFERASE INCREASED [None]
  - INAPPROPRIATE SCHEDULE OF DRUG ADMINISTRATION [None]
  - NASOPHARYNGITIS [None]
  - PYREXIA [None]
  - SERUM FERRITIN INCREASED [None]
